FAERS Safety Report 6864879-6 (Version None)
Quarter: 2010Q3

REPORT INFORMATION
  Report Type: 
  Country: None (occurrence: None)
  Receive Date: 20100720
  Receipt Date: 20100713
  Transmission Date: 20110219
  Serious: Yes (Hospitalization)
  Sender: FDA-Public Use
  Company Number: 2010SP038657

PATIENT
  Age: 35 Year
  Sex: Male

DRUGS (1)
  1. AERIUS (DESLORATADINE /01398501/) (5 MG) [Suspect]
     Indication: RHINITIS ALLERGIC
     Dosage: 5 MG;QD
     Dates: start: 20070226, end: 20070312

REACTIONS (1)
  - ANGINA PECTORIS [None]
